FAERS Safety Report 14207548 (Version 1)
Quarter: 2017Q4

REPORT INFORMATION
  Report Type: Spontaneous
  Country: US (occurrence: None)
  Receive Date: 20171120
  Receipt Date: 20171120
  Transmission Date: 20180321
  Serious: No
  Sender: FDA-Public Use
  Company Number: None

PATIENT
  Age: 62 Year
  Sex: Male

DRUGS (1)
  1. ALBUTEROL. [Suspect]
     Active Substance: ALBUTEROL
     Dosage: 2 PUFF(S) QID INHALE
     Route: 055
     Dates: start: 20171005, end: 20171115

REACTIONS (3)
  - Diarrhoea [None]
  - Chronic obstructive pulmonary disease [None]
  - Device malfunction [None]

NARRATIVE: CASE EVENT DATE: 20171108
